FAERS Safety Report 21545290 (Version 1)
Quarter: 2022Q4

REPORT INFORMATION
  Report Type: Spontaneous
  Country: None (occurrence: US)
  Receive Date: 20221103
  Receipt Date: 20221103
  Transmission Date: 20230112
  Serious: Yes (Hospitalization)
  Sender: FDA-Public Use
  Company Number: US-Hisun Pharmaceuticals-2134447

PATIENT
  Age: 65 Year
  Sex: Female

DRUGS (4)
  1. DAUNORUBICIN HYDROCHLORIDE [Suspect]
     Active Substance: DAUNORUBICIN HYDROCHLORIDE
     Indication: Acute myelomonocytic leukaemia
  2. CYTARABINE [Suspect]
     Active Substance: CYTARABINE
  3. ALLOPURINOL [Concomitant]
     Active Substance: ALLOPURINOL
  4. HYDROXYUREA [Concomitant]
     Active Substance: HYDROXYUREA

REACTIONS (1)
  - Transient acantholytic dermatosis [Recovering/Resolving]
